FAERS Safety Report 16185652 (Version 12)
Quarter: 2020Q4

REPORT INFORMATION
  Report Type: Spontaneous
  Country: US (occurrence: US)
  Receive Date: 20190411
  Receipt Date: 20201104
  Transmission Date: 20210113
  Serious: Yes (Death, Hospitalization, Other)
  Sender: FDA-Public Use
  Company Number: US-VIFOR (INTERNATIONAL) INC.-VIT-2019-03262

PATIENT
  Age: 89 Year
  Sex: Male

DRUGS (40)
  1. LORATADINE. [Concomitant]
     Active Substance: LORATADINE
  2. BENAZEPRIL HYDROCHLORIDE. [Concomitant]
     Active Substance: BENAZEPRIL HYDROCHLORIDE
  3. VALSARTAN. [Concomitant]
     Active Substance: VALSARTAN
  4. GLUCOTROL [Concomitant]
     Active Substance: GLIPIZIDE
  5. TOPROL XL [Concomitant]
     Active Substance: METOPROLOL SUCCINATE
     Dosage: QUANTITY 60
     Dates: start: 20200715, end: 20200914
  6. SODIUM CHLORIDE. [Concomitant]
     Active Substance: SODIUM CHLORIDE
  7. MIDAZOLAM HYDROCHLORIDE. [Concomitant]
     Active Substance: MIDAZOLAM HYDROCHLORIDE
     Dosage: (VERSED 5MG/5ML)
     Dates: start: 20200717
  8. TYLENOL [Concomitant]
     Active Substance: ACETAMINOPHEN
     Dosage: PRN
     Dates: start: 20200715, end: 20200731
  9. MORPHINE [Concomitant]
     Active Substance: MORPHINE
     Dosage: PRN
     Route: 042
     Dates: start: 20200715, end: 20200731
  10. LASIX [Concomitant]
     Active Substance: FUROSEMIDE
  11. METFORMIN HCL [Concomitant]
     Active Substance: METFORMIN HYDROCHLORIDE
  12. ELIQUIS [Concomitant]
     Active Substance: APIXABAN
     Dosage: QUANTITY 60
  13. FOLIC ACID. [Concomitant]
     Active Substance: FOLIC ACID
     Dosage: QUANTITY 30
     Dates: start: 20200715, end: 20200914
  14. ROMAZICON [Concomitant]
     Active Substance: FLUMAZENIL
     Route: 042
     Dates: start: 20200717
  15. MULTIVITAMINS WITH MINERALS [Concomitant]
     Active Substance: MINERALS\VITAMINS
     Dates: start: 20200715, end: 20200914
  16. ACTOS [Concomitant]
     Active Substance: PIOGLITAZONE HYDROCHLORIDE
  17. VELTASSA [Suspect]
     Active Substance: PATIROMER
     Indication: HYPERKALAEMIA
     Route: 048
     Dates: start: 20180629
  18. CLONIDINE HCL [Concomitant]
     Active Substance: CLONIDINE HYDROCHLORIDE
  19. LOVASTATIN. [Concomitant]
     Active Substance: LOVASTATIN
  20. BENADRYL [Concomitant]
     Active Substance: DIPHENHYDRAMINE HYDROCHLORIDE
     Dates: start: 20200717
  21. ATROPINE SULFATE. [Concomitant]
     Active Substance: ATROPINE SULFATE
     Dates: start: 20200717
  22. SUBLIMAZE [Concomitant]
     Active Substance: FENTANYL CITRATE
     Dates: start: 20200717
  23. AMLODIPINE BESYLATE. [Concomitant]
     Active Substance: AMLODIPINE BESYLATE
  24. CENTRUM SILVER 50+MEN [Concomitant]
     Dosage: QUANTITY 100
  25. TRADJENTA [Concomitant]
     Active Substance: LINAGLIPTIN
     Dosage: QUANTITY 30
  26. ZOSYN [Concomitant]
     Active Substance: PIPERACILLIN SODIUM\TAZOBACTAM SODIUM
     Route: 042
     Dates: start: 20200715, end: 20200722
  27. NARCAN [Concomitant]
     Active Substance: NALOXONE HYDROCHLORIDE
     Dates: start: 20200717
  28. EPINEPHRINE. [Concomitant]
     Active Substance: EPINEPHRINE
     Dates: start: 20200717
  29. ZOFRAN [Concomitant]
     Active Substance: ONDANSETRON HYDROCHLORIDE
     Dosage: PRN
     Route: 042
     Dates: start: 20200715, end: 20200731
  30. CRESTOR [Concomitant]
     Active Substance: ROSUVASTATIN CALCIUM
     Dosage: QUANTITY 30
  31. SODIUM CHLORIDE. [Concomitant]
     Active Substance: SODIUM CHLORIDE
     Dosage: NORMAL SALINE
     Route: 042
     Dates: start: 20200715, end: 20200914
  32. VELTASSA [Suspect]
     Active Substance: PATIROMER
     Route: 048
     Dates: start: 201806
  33. ASPIRIN 81 [Concomitant]
     Active Substance: ASPIRIN
  34. HYDRALAZINE HCL [Concomitant]
     Active Substance: HYDRALAZINE HYDROCHLORIDE
  35. FERROUS SULFATE. [Concomitant]
     Active Substance: FERROUS SULFATE
     Dosage: (65 MG IRON) MEALS, QUANTITY 100
  36. COLACE [Concomitant]
     Active Substance: DOCUSATE SODIUM
     Dosage: QUANTITY 30
  37. PEPCID [Concomitant]
     Active Substance: FAMOTIDINE
     Dosage: QUANTITY 30
  38. LIPITOR [Concomitant]
     Active Substance: ATORVASTATIN CALCIUM
     Dates: start: 20200715, end: 20200914
  39. SIMETHICONE (DIMETHICONE) [Concomitant]
     Active Substance: DIMETHICONE
     Dosage: SYRINGE
     Route: 048
     Dates: start: 20200717
  40. PROTONIX [Concomitant]
     Active Substance: PANTOPRAZOLE SODIUM
     Route: 048
     Dates: start: 20200716, end: 20200915

REACTIONS (19)
  - Aortic valve replacement [Unknown]
  - Syncope [Recovering/Resolving]
  - Anaemia [Recovered/Resolved]
  - Hypotension [Unknown]
  - Infection [Unknown]
  - Gastric infection [Unknown]
  - Cardiac pacemaker insertion [Unknown]
  - Dyspnoea [Recovering/Resolving]
  - Pyrexia [Recovered/Resolved]
  - Aortic stenosis [Not Recovered/Not Resolved]
  - Renal failure [Unknown]
  - Cardiac valve disease [Unknown]
  - Asthenia [Unknown]
  - Asthenia [Recovered/Resolved]
  - Haemoglobin decreased [Unknown]
  - Pulmonary oedema [Unknown]
  - Fall [Unknown]
  - Death [Fatal]
  - Abdominal neoplasm [Unknown]

NARRATIVE: CASE EVENT DATE: 2019
